APPROVED DRUG PRODUCT: TRAVASOL 4.25% IN DEXTROSE 25% IN PLASTIC CONTAINER
Active Ingredient: AMINO ACIDS; DEXTROSE
Strength: 4.25%;25GM/100ML
Dosage Form/Route: INJECTABLE;INJECTION
Application: N019520 | Product #010
Applicant: BAXTER HEALTHCARE CORP
Approved: Sep 23, 1988 | RLD: No | RS: No | Type: DISCN